FAERS Safety Report 7529701-3 (Version None)
Quarter: 2011Q2

REPORT INFORMATION
  Report Type: 
  Country: None (occurrence: None)
  Receive Date: 20110607
  Receipt Date: 20110527
  Transmission Date: 20111010
  Serious: Yes (Other)
  Sender: FDA-Public Use
  Company Number: B0701969A

PATIENT
  Sex: Male

DRUGS (2)
  1. PAZOPANIB [Suspect]
     Indication: RENAL CELL CARCINOMA
     Dosage: 800MG PER DAY
     Route: 048
     Dates: start: 20100922, end: 20110204
  2. AMOXICILLIN [Concomitant]

REACTIONS (1)
  - IMPAIRED HEALING [None]
